FAERS Safety Report 14312642 (Version 5)
Quarter: 2019Q2

REPORT INFORMATION
  Report Type: Spontaneous
  Country: US (occurrence: US)
  Receive Date: 20171221
  Receipt Date: 20190509
  Transmission Date: 20190711
  Serious: No
  Sender: FDA-Public Use
  Company Number: US-PFIZER INC-2017542235

PATIENT
  Age: 64 Year
  Sex: Male
  Weight: 104.3 kg

DRUGS (3)
  1. LYRICA [Suspect]
     Active Substance: PREGABALIN
     Dosage: UNK
  2. LYRICA [Suspect]
     Active Substance: PREGABALIN
     Indication: FIBROMYALGIA
     Dosage: 150 MG, THREE TIMES A DAY
     Route: 048
  3. LISINOPRIL. [Concomitant]
     Active Substance: LISINOPRIL
     Dosage: 5 MG, 1X/DAY [5 MG AT NIGHT BY MOUTH]
     Route: 048

REACTIONS (4)
  - Sinus disorder [Unknown]
  - Dysgraphia [Unknown]
  - Product use issue [Unknown]
  - Nasopharyngitis [Unknown]
